FAERS Safety Report 4464038-0 (Version None)
Quarter: 2004Q4

REPORT INFORMATION
  Report Type: 
  Country: None (occurrence: None)
  Receive Date: 20041001
  Receipt Date: 20040922
  Transmission Date: 20050328
  Serious: Yes (Hospitalization, Other)
  Sender: FDA-Public Use
  Company Number: JP-ABBOTT-04P-087-0274412-00

PATIENT
  Age: 79 Year
  Sex: Female

DRUGS (3)
  1. CLARITH [Suspect]
     Indication: UNEVALUABLE EVENT
     Route: 048
     Dates: start: 20040706, end: 20040712
  2. TAKEPRON [Suspect]
     Indication: UNEVALUABLE EVENT
     Route: 048
     Dates: start: 20040706, end: 20040712
  3. AMOXICILLIN [Concomitant]
     Indication: UNEVALUABLE EVENT
     Route: 048
     Dates: start: 20040706, end: 20040712

REACTIONS (5)
  - ANOREXIA [None]
  - BILIRUBIN CONJUGATED INCREASED [None]
  - CHOLESTASIS [None]
  - JAUNDICE [None]
  - NAUSEA [None]
